FAERS Safety Report 7651760-8 (Version None)
Quarter: 2011Q3

REPORT INFORMATION
  Report Type: 
  Country: None (occurrence: None)
  Receive Date: 20110802
  Receipt Date: 20110725
  Transmission Date: 20111222
  Serious: Yes (Other)
  Sender: FDA-Public Use
  Company Number: US-RB-028359-11

PATIENT
  Sex: Male

DRUGS (2)
  1. SUBOXONE [Suspect]
     Indication: DRUG DEPENDENCE
     Dosage: SUBLINGUAL FILM
     Route: 060
     Dates: start: 20110501, end: 20110601
  2. WELLBUTRIN [Concomitant]
     Indication: DEPRESSION
     Route: 065

REACTIONS (7)
  - PRURITUS GENERALISED [None]
  - CONSTIPATION [None]
  - UNDERDOSE [None]
  - DEPRESSION [None]
  - SINUS HEADACHE [None]
  - SUICIDAL IDEATION [None]
  - HYPERHIDROSIS [None]
